FAERS Safety Report 24113133 (Version 4)
Quarter: 2024Q3

REPORT INFORMATION
  Report Type: Spontaneous
  Country: US (occurrence: US)
  Receive Date: 20240719
  Receipt Date: 20240822
  Transmission Date: 20241017
  Serious: Yes (Hospitalization, Other)
  Sender: ELI LILLY AND CO
  Company Number: US-ELI_LILLY_AND_COMPANY-US202407009146

PATIENT
  Age: 62 Year
  Sex: Female

DRUGS (4)
  1. TRULICITY [Suspect]
     Active Substance: DULAGLUTIDE
     Indication: Product used for unknown indication
     Dosage: UNK UNK, UNKNOWN
     Route: 065
     Dates: start: 202404, end: 202406
  2. HUMALOG [Suspect]
     Active Substance: INSULIN LISPRO
     Indication: Product used for unknown indication
     Dosage: UNK UNK, UNKNOWN
     Route: 065
  3. HUMALOG [Suspect]
     Active Substance: INSULIN LISPRO
     Dosage: UNK UNK, UNKNOWN
     Route: 065
  4. LANTUS [Concomitant]
     Active Substance: INSULIN GLARGINE
     Indication: Product used for unknown indication

REACTIONS (16)
  - Blood glucose increased [Recovered/Resolved]
  - Fall [Recovered/Resolved]
  - Diabetic endorgan damage [Unknown]
  - Thyroid cancer [Unknown]
  - Eye haemorrhage [Recovered/Resolved]
  - Dyspnoea [Not Recovered/Not Resolved]
  - Dysphagia [Unknown]
  - Seasonal allergy [Not Recovered/Not Resolved]
  - Dysphonia [Unknown]
  - Oropharyngeal pain [Unknown]
  - Dry throat [Unknown]
  - Sleep disorder due to general medical condition, insomnia type [Unknown]
  - Cough [Not Recovered/Not Resolved]
  - Hernia [Not Recovered/Not Resolved]
  - Gait inability [Not Recovered/Not Resolved]
  - Blood glucose decreased [Recovered/Resolved]
